FAERS Safety Report 24910878 (Version 1)
Quarter: 2025Q1

REPORT INFORMATION
  Report Type: Spontaneous
  Country: US (occurrence: US)
  Receive Date: 20250131
  Receipt Date: 20250131
  Transmission Date: 20250409
  Serious: Yes (Hospitalization, Other)
  Sender: COOPERSURGICAL
  Company Number: US-COOPERSURGICAL, INC.-2025CPS000463

PATIENT
  Age: 29 Year
  Sex: Female
  Weight: 79.365 kg

DRUGS (3)
  1. PARAGARD T 380A [Suspect]
     Active Substance: COPPER
     Route: 015
     Dates: start: 20121128
  2. NAPROXEN [Concomitant]
     Active Substance: NAPROXEN
     Dates: start: 20101210
  3. VALACYCLOVIR [Concomitant]
     Active Substance: VALACYCLOVIR HYDROCHLORIDE
     Dates: start: 20101204

REACTIONS (36)
  - Reproductive complication associated with device [Not Recovered/Not Resolved]
  - Infertility female [Not Recovered/Not Resolved]
  - Stillbirth [Recovered/Resolved]
  - Systemic lupus erythematosus [Unknown]
  - Incontinence [Unknown]
  - Anxiety [Unknown]
  - Uterine polyp [Recovered/Resolved]
  - Device breakage [Not Recovered/Not Resolved]
  - Foreign body in reproductive tract [Not Recovered/Not Resolved]
  - Complication of device removal [Not Recovered/Not Resolved]
  - Pregnancy with contraceptive device [Recovered/Resolved]
  - Drug ineffective [Unknown]
  - Abortion spontaneous [Unknown]
  - Pain [Unknown]
  - Fatigue [Not Recovered/Not Resolved]
  - Weight increased [Not Recovered/Not Resolved]
  - Glucose tolerance impaired [Not Recovered/Not Resolved]
  - Libido decreased [Not Recovered/Not Resolved]
  - Cervical cyst [Not Recovered/Not Resolved]
  - Mood altered [Recovered/Resolved]
  - Post-traumatic stress disorder [Recovered/Resolved]
  - Depression [Recovered/Resolved]
  - Affective disorder [Unknown]
  - Urinary incontinence [Not Recovered/Not Resolved]
  - Uterine scar [Not Recovered/Not Resolved]
  - Dyspareunia [Not Recovered/Not Resolved]
  - Muscle spasms [Not Recovered/Not Resolved]
  - Pelvic pain [Not Recovered/Not Resolved]
  - Abdominal pain [Not Recovered/Not Resolved]
  - Heavy menstrual bleeding [Not Recovered/Not Resolved]
  - Intermenstrual bleeding [Not Recovered/Not Resolved]
  - Back pain [Unknown]
  - Fungal infection [Not Recovered/Not Resolved]
  - Abnormal uterine bleeding [Unknown]
  - Discomfort [Unknown]
  - Vaginal discharge [Not Recovered/Not Resolved]

NARRATIVE: CASE EVENT DATE: 20121101
